FAERS Safety Report 6274585-7 (Version None)
Quarter: 2009Q3

REPORT INFORMATION
  Report Type: 
  Country: None (occurrence: None)
  Receive Date: 20090720
  Receipt Date: 20090714
  Transmission Date: 20100115
  Serious: Yes (Other)
  Sender: FDA-Public Use
  Company Number: US-AVENTIS-200916159US

PATIENT
  Age: 68 Year
  Sex: Male

DRUGS (11)
  1. LANTUS [Suspect]
     Dosage: DOSE: 35-36
     Route: 058
     Dates: start: 20090602
  2. LANTUS [Suspect]
     Route: 058
     Dates: start: 20090101
  3. LISINOPRIL [Concomitant]
     Dosage: DOSE: UNK
  4. ALBUTEROL [Concomitant]
     Indication: ASTHMA
     Dosage: DOSE: UNK
  5. QVAR 40 [Concomitant]
     Indication: ASTHMA
     Dosage: DOSE: UNK
  6. VENTOLIN HFA [Concomitant]
     Dosage: DOSE: UNK
  7. METFORMIN HCL [Concomitant]
     Dosage: DOSE: 500 MG
  8. METFORMIN HCL [Concomitant]
     Dosage: DOSE: 850 MG
  9. INDERAL                            /00030001/ [Concomitant]
     Dosage: DOSE: UNK
  10. COUMADIN [Concomitant]
     Indication: ATRIAL FIBRILLATION
     Dosage: DOSE: UNK
  11. OXYGEN [Concomitant]
     Indication: ASTHMA
     Dosage: DOSE: AT NIGHT

REACTIONS (3)
  - DRUG EFFECT DECREASED [None]
  - HYPOTENSION [None]
  - TACHYCARDIA [None]
